FAERS Safety Report 23334878 (Version 3)
Quarter: 2024Q2

REPORT INFORMATION
  Report Type: Other
  Country: US (occurrence: US)
  Receive Date: 20231224
  Receipt Date: 20240512
  Transmission Date: 20240716
  Serious: No
  Sender: FDA-Public Use
  Company Number: US-TRAVERE-2023TVT00854

PATIENT
  Sex: Female
  Weight: 72.57 kg

DRUGS (11)
  1. FILSPARI [Suspect]
     Active Substance: SPARSENTAN
     Indication: IgA nephropathy
     Route: 048
  2. FILSPARI [Suspect]
     Active Substance: SPARSENTAN
     Route: 048
     Dates: start: 20231128
  3. HYDROCORTISONE-ALOE [Concomitant]
  4. AMBIEN CR [Concomitant]
     Active Substance: ZOLPIDEM TARTRATE
  5. ZADITOR [Concomitant]
     Active Substance: KETOTIFEN FUMARATE
  6. FLONASE ALLERGY RELIE [Concomitant]
  7. EMERGEN-C [Concomitant]
     Active Substance: VITAMINS
  8. MAGNESIUM OXIDE [Concomitant]
     Active Substance: MAGNESIUM OXIDE
  9. ALLEGRA ALLERGY [Concomitant]
     Active Substance: FEXOFENADINE HYDROCHLORIDE
  10. TYLENOL ARTHRITIS PAIN [Concomitant]
     Active Substance: ACETAMINOPHEN
  11. FARXIGA [Concomitant]
     Active Substance: DAPAGLIFLOZIN PROPANEDIOL

REACTIONS (4)
  - Dizziness [Recovered/Resolved]
  - Blood creatinine decreased [Recovered/Resolved]
  - Hypotension [Unknown]
  - Muscle spasms [Unknown]
